FAERS Safety Report 21450034 (Version 1)
Quarter: 2022Q4

REPORT INFORMATION
  Report Type: Spontaneous
  Country: US (occurrence: None)
  Receive Date: 20221012
  Receipt Date: 20221012
  Transmission Date: 20230113
  Serious: Yes (Hospitalization)
  Sender: FDA-Public Use
  Company Number: None

PATIENT
  Sex: Male
  Weight: 88.1 kg

DRUGS (3)
  1. MERCAPTOPURINE [Suspect]
     Active Substance: MERCAPTOPURINE
  2. METHOTREXATE [Concomitant]
     Active Substance: METHOTREXATE
  3. VINCRISTINE SULFATE [Concomitant]
     Active Substance: VINCRISTINE SULFATE

REACTIONS (1)
  - Rhinovirus infection [None]

NARRATIVE: CASE EVENT DATE: 20220914
